FAERS Safety Report 16266005 (Version 4)
Quarter: 2019Q2

REPORT INFORMATION
  Report Type: Report from Study
  Country: FR (occurrence: FR)
  Receive Date: 20190502
  Receipt Date: 20190613
  Transmission Date: 20190711
  Serious: Yes (Hospitalization)
  Sender: FDA-Public Use
  Company Number: FR-JNJFOC-20190443411

PATIENT
  Age: 75 Year
  Sex: Male

DRUGS (9)
  1. ABIRATERONE ACETATE. [Suspect]
     Active Substance: ABIRATERONE ACETATE
     Indication: PROSTATE CANCER METASTATIC
     Route: 048
     Dates: start: 20170217
  2. PREDNISONE. [Suspect]
     Active Substance: PREDNISONE
     Indication: PROSTATE CANCER METASTATIC
     Route: 048
     Dates: start: 20170217
  3. CRESTOR [Concomitant]
     Active Substance: ROSUVASTATIN CALCIUM
     Indication: CONGESTIVE CARDIOMYOPATHY
     Route: 065
  4. COVERAM [Concomitant]
     Active Substance: AMLODIPINE\PERINDOPRIL
     Indication: CONGESTIVE CARDIOMYOPATHY
     Route: 065
  5. LEUPRORELINE [Suspect]
     Active Substance: LEUPROLIDE
     Indication: PROSTATE CANCER METASTATIC
     Route: 058
     Dates: start: 20170106
  6. MYOLASTAN [Concomitant]
     Active Substance: TETRAZEPAM
     Indication: CONGESTIVE CARDIOMYOPATHY
     Route: 065
  7. LASILIX [Concomitant]
     Active Substance: FUROSEMIDE
     Indication: CONGESTIVE CARDIOMYOPATHY
     Route: 065
  8. CARDENSIEL [Concomitant]
     Active Substance: BISOPROLOL FUMARATE
     Indication: CONGESTIVE CARDIOMYOPATHY
     Route: 065
  9. EUPRESSYL [Concomitant]
     Active Substance: URAPIDIL
     Indication: CONGESTIVE CARDIOMYOPATHY
     Route: 065

REACTIONS (1)
  - Cardiac failure [Recovered/Resolved]

NARRATIVE: CASE EVENT DATE: 20190424
